FAERS Safety Report 6887772-1 (Version None)
Quarter: 2010Q3

REPORT INFORMATION
  Report Type: 
  Country: None (occurrence: None)
  Receive Date: 20100726
  Receipt Date: 20100716
  Transmission Date: 20110219
  Serious: Yes (Disabling)
  Sender: FDA-Public Use
  Company Number: 200814262

PATIENT
  Age: 66 Year
  Sex: Female

DRUGS (46)
  1. BERINERT [Suspect]
     Indication: HEREDITARY ANGIOEDEMA
     Dosage: 500 IU PRN, DAILY DOSE QUANTITY: 500, DAILY DOSE UNIT: IU INTRAVENOUS
     Route: 042
     Dates: start: 20010101
  2. BERINERT [Suspect]
     Indication: HEREDITARY ANGIOEDEMA
     Dosage: 500 IU PRN, DAILY DOSE QUANTITY: 500, DAILY DOSE UNIT: IU INTRAVENOUS
     Route: 042
     Dates: start: 20010910
  3. BERINERT [Suspect]
     Indication: HEREDITARY ANGIOEDEMA
     Dosage: 500 IU PRN, DAILY DOSE QUANTITY: 500, DAILY DOSE UNIT: IU INTRAVENOUS
     Route: 042
     Dates: start: 20020531
  4. BERINERT [Suspect]
     Indication: HEREDITARY ANGIOEDEMA
     Dosage: 500 IU PRN, DAILY DOSE QUANTITY: 500, DAILY DOSE UNIT: IU INTRAVENOUS
     Route: 042
     Dates: start: 20030626
  5. BERINERT [Suspect]
     Indication: HEREDITARY ANGIOEDEMA
     Dosage: 500 IU PRN, DAILY DOSE QUANTITY: 500, DAILY DOSE UNIT: IU INTRAVENOUS
     Route: 042
     Dates: start: 20040518
  6. BERINERT [Suspect]
     Indication: HEREDITARY ANGIOEDEMA
     Dosage: 500 IU PRN, DAILY DOSE QUANTITY: 500, DAILY DOSE UNIT: IU INTRAVENOUS
     Route: 042
     Dates: start: 20041104
  7. BERINERT [Suspect]
     Indication: HEREDITARY ANGIOEDEMA
     Dosage: 500 IU PRN, DAILY DOSE QUANTITY: 500, DAILY DOSE UNIT: IU INTRAVENOUS
     Route: 042
     Dates: start: 20050512
  8. BERINERT [Suspect]
     Indication: HEREDITARY ANGIOEDEMA
     Dosage: 500 IU PRN, DAILY DOSE QUANTITY: 500, DAILY DOSE UNIT: IU INTRAVENOUS
     Route: 042
     Dates: start: 20050607
  9. BERINERT [Suspect]
     Indication: HEREDITARY ANGIOEDEMA
     Dosage: 500 IU PRN, DAILY DOSE QUANTITY: 500, DAILY DOSE UNIT: IU INTRAVENOUS
     Route: 042
     Dates: start: 20050715
  10. BERINERT [Suspect]
     Indication: HEREDITARY ANGIOEDEMA
     Dosage: 500 IU PRN, DAILY DOSE QUANTITY: 500, DAILY DOSE UNIT: IU INTRAVENOUS
     Route: 042
     Dates: start: 20050902
  11. BERINERT [Suspect]
     Indication: HEREDITARY ANGIOEDEMA
     Dosage: 500 IU PRN, DAILY DOSE QUANTITY: 500, DAILY DOSE UNIT: IU INTRAVENOUS
     Route: 042
     Dates: start: 20050927
  12. BERINERT [Suspect]
     Indication: HEREDITARY ANGIOEDEMA
     Dosage: 500 IU PRN, DAILY DOSE QUANTITY: 500, DAILY DOSE UNIT: IU INTRAVENOUS
     Route: 042
     Dates: start: 20050929
  13. BERINERT [Suspect]
     Indication: HEREDITARY ANGIOEDEMA
     Dosage: 500 IU PRN, DAILY DOSE QUANTITY: 500, DAILY DOSE UNIT: IU INTRAVENOUS
     Route: 042
     Dates: start: 20060512
  14. BERINERT [Suspect]
     Indication: HEREDITARY ANGIOEDEMA
     Dosage: 500 IU PRN, DAILY DOSE QUANTITY: 500, DAILY DOSE UNIT: IU INTRAVENOUS
     Route: 042
     Dates: start: 20060720
  15. BERINERT [Suspect]
     Indication: HEREDITARY ANGIOEDEMA
     Dosage: 500 IU PRN, DAILY DOSE QUANTITY: 500, DAILY DOSE UNIT: IU INTRAVENOUS
     Route: 042
     Dates: start: 20060926
  16. BERINERT [Suspect]
     Indication: HEREDITARY ANGIOEDEMA
     Dosage: 500 IU PRN, DAILY DOSE QUANTITY: 500, DAILY DOSE UNIT: IU INTRAVENOUS
     Route: 042
     Dates: start: 20061219
  17. BERINERT [Suspect]
     Indication: HEREDITARY ANGIOEDEMA
     Dosage: 500 IU PRN, DAILY DOSE QUANTITY: 500, DAILY DOSE UNIT: IU INTRAVENOUS
     Route: 042
     Dates: start: 20070212
  18. BERINERT [Suspect]
     Indication: HEREDITARY ANGIOEDEMA
     Dosage: 500 IU PRN, DAILY DOSE QUANTITY: 500, DAILY DOSE UNIT: IU INTRAVENOUS
     Route: 042
     Dates: start: 20070423
  19. BERINERT [Suspect]
     Indication: HEREDITARY ANGIOEDEMA
     Dosage: 500 IU PRN, DAILY DOSE QUANTITY: 500, DAILY DOSE UNIT: IU INTRAVENOUS
     Route: 042
     Dates: start: 20070427
  20. BERINERT [Suspect]
     Indication: HEREDITARY ANGIOEDEMA
     Dosage: 500 IU PRN, DAILY DOSE QUANTITY: 500, DAILY DOSE UNIT: IU INTRAVENOUS
     Route: 042
     Dates: start: 20070719
  21. BERINERT [Suspect]
     Indication: HEREDITARY ANGIOEDEMA
     Dosage: 500 IU PRN, DAILY DOSE QUANTITY: 500, DAILY DOSE UNIT: IU INTRAVENOUS
     Route: 042
     Dates: start: 20070726
  22. BERINERT [Suspect]
     Indication: HEREDITARY ANGIOEDEMA
     Dosage: 500 IU PRN, DAILY DOSE QUANTITY: 500, DAILY DOSE UNIT: IU INTRAVENOUS
     Route: 042
     Dates: start: 20080304
  23. BERINERT [Suspect]
     Indication: HEREDITARY ANGIOEDEMA
     Dosage: 500 IU PRN, DAILY DOSE QUANTITY: 500, DAILY DOSE UNIT: IU INTRAVENOUS
     Route: 042
     Dates: start: 20080519
  24. BERINERT [Suspect]
     Indication: HEREDITARY ANGIOEDEMA
     Dosage: 500 IU PRN, DAILY DOSE QUANTITY: 500, DAILY DOSE UNIT: IU INTRAVENOUS
     Route: 042
     Dates: start: 20080924
  25. BERINERT [Suspect]
  26. BERINERT [Suspect]
  27. BERINERT [Suspect]
  28. BERINERT [Suspect]
  29. BERINERT [Suspect]
  30. BERINERT [Suspect]
  31. BERINERT [Suspect]
  32. BERINERT [Suspect]
  33. BERINERT [Suspect]
  34. BERINERT [Suspect]
  35. BERINERT [Suspect]
  36. BERINERT [Suspect]
  37. BERINERT [Suspect]
  38. BERINERT [Suspect]
  39. BERINERT [Suspect]
  40. BERINERT [Suspect]
  41. BERINERT [Suspect]
  42. BERINERT [Suspect]
  43. BERINERT [Suspect]
  44. BERINERT [Suspect]
  45. BERINERT [Suspect]
  46. BERINERT [Suspect]

REACTIONS (1)
  - HEPATITIS C ANTIBODY POSITIVE [None]
